FAERS Safety Report 18679427 (Version 1)
Quarter: 2020Q4

REPORT INFORMATION
  Report Type: Spontaneous
  Country: FR (occurrence: FR)
  Receive Date: 20201229
  Receipt Date: 20201229
  Transmission Date: 20210114
  Serious: Yes (Other)
  Sender: FDA-Public Use
  Company Number: FR-BAUSCH-BL-2020-037865

PATIENT
  Age: 56 Year
  Sex: Male

DRUGS (15)
  1. LYRICA [Concomitant]
     Active Substance: PREGABALIN
     Indication: NEURALGIA
     Route: 048
     Dates: start: 20200612, end: 20200622
  2. RAMIPRIL. [Concomitant]
     Active Substance: RAMIPRIL
     Indication: MYOCARDIAL ISCHAEMIA
     Route: 048
     Dates: start: 2018
  3. KARDEGIC [Concomitant]
     Active Substance: ASPIRIN DL-LYSINE
     Indication: MYOCARDIAL ISCHAEMIA
     Route: 048
     Dates: start: 2018
  4. LIPTRUZET [Concomitant]
     Active Substance: ATORVASTATIN CALCIUM\EZETIMIBE
     Indication: DYSLIPIDAEMIA
     Dosage: 10 MG/40 MG
     Route: 048
     Dates: start: 2018
  5. DEXAMETHASONE. [Suspect]
     Active Substance: DEXAMETHASONE
     Indication: PLASMA CELL MYELOMA
     Route: 042
     Dates: start: 20200720, end: 20200801
  6. CYMBALTA [Suspect]
     Active Substance: DULOXETINE HYDROCHLORIDE
     Indication: NEURALGIA
     Route: 048
     Dates: start: 20200622, end: 202009
  7. VALACICLOVIR [Concomitant]
     Active Substance: VALACYCLOVIR HYDROCHLORIDE
     Indication: INFECTION PROPHYLAXIS
     Dosage: 1-0-1
     Route: 048
     Dates: start: 20200330
  8. VELCADE [Concomitant]
     Active Substance: BORTEZOMIB
     Route: 058
     Dates: start: 20200330, end: 20200430
  9. REVLIMID [Suspect]
     Active Substance: LENALIDOMIDE
     Indication: PLASMA CELL MYELOMA
     Route: 048
     Dates: start: 20201001
  10. REVLIMID [Suspect]
     Active Substance: LENALIDOMIDE
     Route: 048
     Dates: start: 20200330, end: 20200811
  11. VELCADE [Concomitant]
     Active Substance: BORTEZOMIB
     Indication: PLASMA CELL MYELOMA
     Route: 058
     Dates: start: 20200512, end: 20200605
  12. EPLERENONE. [Concomitant]
     Active Substance: EPLERENONE
     Indication: MYOCARDIAL ISCHAEMIA
     Route: 048
     Dates: start: 2018
  13. ZOMETA [Suspect]
     Active Substance: ZOLEDRONIC ACID
     Indication: PLASMA CELL MYELOMA
     Dosage: 4 MG CYCLICAL
     Route: 042
     Dates: start: 20200324, end: 20200717
  14. BISOPROLOL FUMARATE. [Concomitant]
     Active Substance: BISOPROLOL FUMARATE
     Indication: MYOCARDIAL ISCHAEMIA
     Route: 048
     Dates: start: 2018
  15. VELCADE [Concomitant]
     Active Substance: BORTEZOMIB
     Route: 058
     Dates: start: 20200605, end: 20200612

REACTIONS (1)
  - Osteonecrosis of jaw [Recovered/Resolved]

NARRATIVE: CASE EVENT DATE: 20200928
